FAERS Safety Report 8491187-2 (Version None)
Quarter: 2012Q3

REPORT INFORMATION
  Report Type: 
  Country: None (occurrence: None)
  Receive Date: 20120706
  Receipt Date: 20120626
  Transmission Date: 20120928
  Serious: Yes (Other)
  Sender: FDA-Public Use
  Company Number: CA-JNJFOC-20120613397

PATIENT
  Sex: Female
  Weight: 100.5 kg

DRUGS (10)
  1. ALL OTHER THERAPEUTIC PRODUCT [Concomitant]
     Route: 065
  2. TYLENOL W/ CODEINE NO. 3 [Concomitant]
     Route: 065
  3. METHOTREXATE [Concomitant]
     Route: 065
  4. HYDROCHLOROTHIAZIDE [Concomitant]
     Route: 065
  5. FOLIC ACID [Concomitant]
     Route: 065
  6. CALCIUM [Concomitant]
     Route: 065
  7. REMICADE [Suspect]
     Indication: RHEUMATOID ARTHRITIS
     Route: 042
     Dates: start: 20090825
  8. VITAMIN D [Concomitant]
     Route: 065
  9. REMICADE [Suspect]
     Dosage: 21ST INFUSION
     Route: 042
     Dates: start: 20120626
  10. RANITIDINE [Concomitant]
     Route: 065

REACTIONS (3)
  - BURNING SENSATION [None]
  - GLUCOSE TOLERANCE IMPAIRED [None]
  - NEURALGIA [None]
